FAERS Safety Report 9961221 (Version 1)
Quarter: 2014Q1

REPORT INFORMATION
  Report Type: Spontaneous
  Country: US (occurrence: None)
  Receive Date: 20140127
  Receipt Date: 20140127
  Transmission Date: 20141002
  Serious: Yes (Other)
  Sender: FDA-Public Use
  Company Number: 1100531

PATIENT
  Age: 66 Year
  Sex: Male

DRUGS (12)
  1. ACTIVASE [Suspect]
     Indication: MYOCARDIAL INFARCTION
     Dosage: (10 MG), INTRAVENOUS BOLUS
     Route: 040
  2. ACTIVASE [Suspect]
     Indication: CARDIOGENIC SHOCK
     Dosage: (10 MG), INTRAVENOUS BOLUS
     Route: 040
  3. MORPHINE SULFATE [Concomitant]
  4. REGLAN [Concomitant]
  5. ASA (ASPIRIN) [Concomitant]
  6. HEPARIN (HEPARIN SODIUM) [Concomitant]
  7. LIDOCAINE [Concomitant]
  8. NITROGLYCERIN [Concomitant]
  9. ZANTAC (RANITIDINE HYDROCHLORIDE) [Concomitant]
  10. ATIVAN (LORAZEPAM) [Concomitant]
  11. CAPTOPRIL [Concomitant]
  12. LOPRESSOR (METOPROLOL TARTRATE) [Concomitant]

REACTIONS (4)
  - Sinus bradycardia [None]
  - Arrhythmia [None]
  - Ventricular extrasystoles [None]
  - Extrasystoles [None]
